FAERS Safety Report 15145518 (Version 8)
Quarter: 2020Q1

REPORT INFORMATION
  Report Type: Spontaneous
  Country: CA (occurrence: CA)
  Receive Date: 20180713
  Receipt Date: 20200314
  Transmission Date: 20200409
  Serious: Yes (Hospitalization, Other)
  Sender: FDA-Public Use
  Company Number: CA-ACTELION-A-US2018-172180

PATIENT
  Sex: Female
  Weight: 63.49 kg

DRUGS (9)
  1. FUROSEMIDE. [Concomitant]
     Active Substance: FUROSEMIDE
  2. BIOTIN [Concomitant]
     Active Substance: BIOTIN
  3. ASA [Concomitant]
     Active Substance: ASPIRIN
     Dosage: 81 MG, UNK
  4. DILTIAZEM. [Concomitant]
     Active Substance: DILTIAZEM
  5. ADCIRCA [Concomitant]
     Active Substance: TADALAFIL
  6. METAMUCIL [Concomitant]
     Active Substance: PLANTAGO SEED
  7. SYNTHROID [Concomitant]
     Active Substance: LEVOTHYROXINE SODIUM
  8. CARIPUL [Suspect]
     Active Substance: EPOPROSTENOL
     Indication: PULMONARY HYPERTENSION
     Dosage: 30000 NG
     Route: 042
     Dates: start: 20150302
  9. OPSUMIT [Suspect]
     Active Substance: MACITENTAN
     Indication: PULMONARY HYPERTENSION
     Dosage: 10 MG, QD
     Route: 048
     Dates: start: 20150211

REACTIONS (16)
  - Catheter placement [Unknown]
  - Dysphagia [Unknown]
  - Fluid retention [Unknown]
  - Dizziness [Unknown]
  - Sepsis [Recovering/Resolving]
  - Weight decreased [Recovering/Resolving]
  - Intervertebral disc compression [Recovering/Resolving]
  - Stress fracture [Recovering/Resolving]
  - Anaemia [Not Recovered/Not Resolved]
  - Lymphadenopathy [Unknown]
  - Blood iron decreased [Unknown]
  - Breast mass [Unknown]
  - Lung cyst [Unknown]
  - Cough [Unknown]
  - Internal haemorrhage [Unknown]
  - Gastrointestinal disorder [Unknown]
